FAERS Safety Report 19711506 (Version 3)
Quarter: 2022Q2

REPORT INFORMATION
  Report Type: Report from Study
  Country: AR (occurrence: AR)
  Receive Date: 20210817
  Receipt Date: 20220408
  Transmission Date: 20220721
  Serious: Yes (Other)
  Sender: FDA-Public Use
  Company Number: NVSC2021AR079355

PATIENT
  Age: 50 Year
  Sex: Male

DRUGS (6)
  1. COSENTYX [Suspect]
     Active Substance: SECUKINUMAB
     Indication: Psoriatic arthropathy
     Dosage: 300 MG, QMO
     Route: 058
     Dates: start: 20170131, end: 20210303
  2. COSENTYX [Suspect]
     Active Substance: SECUKINUMAB
     Dosage: UNK
     Route: 065
     Dates: start: 20210415
  3. COSENTYX [Suspect]
     Active Substance: SECUKINUMAB
     Dosage: 150 MG, EVERY 15 DAYS
     Route: 065
     Dates: start: 20210628
  4. DICLOFENAC POTASSIUM [Concomitant]
     Active Substance: DICLOFENAC POTASSIUM
     Indication: Product used for unknown indication
     Dosage: 75 MG
     Route: 065
  5. NAPROXEN [Concomitant]
     Active Substance: NAPROXEN
     Indication: Product used for unknown indication
     Dosage: 50 MG
     Route: 065
  6. LINPREL [Concomitant]
     Indication: Product used for unknown indication
     Dosage: UNK
     Route: 065

REACTIONS (22)
  - Respiratory failure [Unknown]
  - COVID-19 [Recovered/Resolved]
  - Chest pain [Recovered/Resolved]
  - Pyrexia [Unknown]
  - Cough [Unknown]
  - Headache [Unknown]
  - Myalgia [Unknown]
  - Night sweats [Unknown]
  - Pain [Unknown]
  - Fatigue [Unknown]
  - Oxygen saturation decreased [Unknown]
  - Red blood cell count increased [Unknown]
  - Red cell distribution width increased [Unknown]
  - Hyperuricaemia [Unknown]
  - High density lipoprotein decreased [Unknown]
  - Neutrophil count increased [Unknown]
  - Eosinophil count increased [Unknown]
  - Neutrophil percentage decreased [Unknown]
  - C-reactive protein increased [Unknown]
  - Arthralgia [Unknown]
  - Spinal pain [Unknown]
  - Inappropriate schedule of product administration [Unknown]

NARRATIVE: CASE EVENT DATE: 20201203
